FAERS Safety Report 6752990-X (Version None)
Quarter: 2010Q2

REPORT INFORMATION
  Report Type: 
  Country: None (occurrence: None)
  Receive Date: 20100603
  Receipt Date: 20100531
  Transmission Date: 20101027
  Serious: Yes (Other)
  Sender: FDA-Public Use
  Company Number: FR-WYE-G06204310

PATIENT
  Age: 70 Year
  Sex: Male

DRUGS (2)
  1. TORISEL [Suspect]
     Indication: MANTLE CELL LYMPHOMA
     Dosage: 12 BOTTLES ONCE
     Route: 042
     Dates: start: 20100510, end: 20100510
  2. TORISEL [Suspect]
     Dosage: 12 BOTTLES ONCE
     Route: 042
     Dates: start: 20100517, end: 20100517

REACTIONS (6)
  - ACCIDENTAL OVERDOSE [None]
  - ASTHENIA [None]
  - HAEMOGLOBIN DECREASED [None]
  - PLATELET COUNT DECREASED [None]
  - WHITE BLOOD CELL COUNT DECREASED [None]
  - WRONG TECHNIQUE IN DRUG USAGE PROCESS [None]
